FAERS Safety Report 9682865 (Version 1)
Quarter: 2013Q4

REPORT INFORMATION
  Report Type: Spontaneous
  Country: US (occurrence: US)
  Receive Date: 20131112
  Receipt Date: 20131112
  Transmission Date: 20140711
  Serious: Yes (Other)
  Sender: FDA-Public Use
  Company Number: US-BAYER-2013-136063

PATIENT
  Age: 37 Year
  Sex: Female

DRUGS (12)
  1. YAZ [Suspect]
  2. YASMIN [Suspect]
  3. GIANVI [Suspect]
  4. AMOXICILLIN [Concomitant]
     Indication: SINUSITIS
     Dosage: 500 MG, 3 TABLETS
  5. LEVOFLOXACIN [Concomitant]
     Dosage: 750 MG, UNK
  6. PREDNISONE [Concomitant]
     Dosage: 20 MG, UNK
  7. PRO-AIR [Concomitant]
     Route: 045
  8. HYDROMET [Concomitant]
  9. LEXAPRO [Concomitant]
     Dosage: 10 MG, UNK
  10. MEDROL [Concomitant]
     Indication: SINUSITIS
     Dosage: 4 MG, DOSEPAK 21^S
  11. FLUCONAZOLE [Concomitant]
     Dosage: 100 MG, UNK
  12. LIPITOR [Concomitant]

REACTIONS (2)
  - Retinal artery occlusion [None]
  - Gallbladder disorder [None]
